FAERS Safety Report 6495982-0 (Version None)
Quarter: 2009Q4

REPORT INFORMATION
  Report Type: 
  Country: None (occurrence: None)
  Receive Date: 20091214
  Receipt Date: 20090910
  Transmission Date: 20100525
  Serious: No
  Sender: FDA-Public Use
  Company Number: US-BRISTOL-MYERS SQUIBB COMPANY-14774442

PATIENT
  Age: 60 Year
  Sex: Female
  Weight: 172 kg

DRUGS (3)
  1. ABILIFY [Suspect]
     Indication: DEPRESSION
     Dosage: INITIATED AT 20MG BID FOR 2 WEEKS
  2. PROZAC [Concomitant]
  3. CYMBALTA [Concomitant]

REACTIONS (3)
  - DIARRHOEA [None]
  - OVERDOSE [None]
  - TREMOR [None]
